FAERS Safety Report 6542348-0 (Version None)
Quarter: 2010Q1

REPORT INFORMATION
  Report Type: 
  Country: None (occurrence: None)
  Receive Date: 20100114
  Receipt Date: 20100114
  Transmission Date: 20100710
  Serious: Yes (Hospitalization)
  Sender: FDA-Public Use
  Company Number: None

PATIENT
  Age: 38 Year
  Sex: Female
  Weight: 125 kg

DRUGS (1)
  1. PROPYLTHIOURACIL [Suspect]
     Indication: THYROID FUNCTION TEST ABNORMAL
     Dosage: 2 TABS TWICE A DAY PO
     Route: 048
     Dates: start: 20090701, end: 20090716

REACTIONS (9)
  - ARTHRALGIA [None]
  - BLOOD TEST ABNORMAL [None]
  - CHILLS [None]
  - CHOLELITHIASIS [None]
  - HEADACHE [None]
  - NAUSEA [None]
  - PYREXIA [None]
  - RASH [None]
  - VOMITING [None]
